FAERS Safety Report 19566631 (Version 4)
Quarter: 2021Q3

REPORT INFORMATION
  Report Type: Report from Study
  Country: NL (occurrence: NL)
  Receive Date: 20210716
  Receipt Date: 20210817
  Transmission Date: 20211014
  Serious: Yes (Other)
  Sender: FDA-Public Use
  Company Number: NL-TAKEDA-2021TUS044432

PATIENT
  Sex: Male

DRUGS (3)
  1. VALACICLOVIR [Concomitant]
     Active Substance: VALACYCLOVIR HYDROCHLORIDE
     Dosage: UNK
  2. VEDOLIZUMAB [Suspect]
     Active Substance: VEDOLIZUMAB
     Indication: INFLAMMATORY BOWEL DISEASE
     Dosage: UNK
     Route: 042
     Dates: start: 20180105, end: 20180501
  3. DOXYCYCLINE. [Concomitant]
     Active Substance: DOXYCYCLINE
     Dosage: UNK

REACTIONS (2)
  - Basal cell carcinoma [Recovered/Resolved]
  - Scar [Not Recovered/Not Resolved]

NARRATIVE: CASE EVENT DATE: 20200610
